FAERS Safety Report 5628388-4 (Version None)
Quarter: 2008Q1

REPORT INFORMATION
  Report Type: 
  Country: None (occurrence: None)
  Receive Date: 20080215
  Receipt Date: 20080207
  Transmission Date: 20080703
  Serious: Yes (Other)
  Sender: FDA-Public Use
  Company Number: DE-PFIZER INC-2007100716

PATIENT
  Sex: Female
  Weight: 58 kg

DRUGS (4)
  1. CABASERIL [Suspect]
     Indication: PARKINSON'S DISEASE
     Dosage: DAILY DOSE:1MG-FREQ:DAILY
     Route: 048
  2. MIRTAZAPINE [Suspect]
     Indication: DEPRESSION
     Route: 048
     Dates: start: 20060101, end: 20071101
  3. MADOPAR [Concomitant]
     Route: 048
  4. NEXIUM [Concomitant]
     Route: 048

REACTIONS (1)
  - ANAEMIA [None]
